FAERS Safety Report 23267251 (Version 1)
Quarter: 2023Q4

REPORT INFORMATION
  Report Type: Spontaneous
  Country: US (occurrence: None)
  Receive Date: 20231205
  Receipt Date: 20231205
  Transmission Date: 20240109
  Serious: Yes (Hospitalization)
  Sender: FDA-Public Use
  Company Number: None

PATIENT
  Age: 71 Year
  Sex: Female

DRUGS (1)
  1. RETACRIT [Suspect]
     Active Substance: EPOETIN ALFA-EPBX
     Indication: Chronic kidney disease
     Dosage: OTHER QUANTITY : 20,000UNITS;?FREQUENCY : MONTHLY;?
     Route: 058
     Dates: start: 20230630

REACTIONS (2)
  - Renal stone removal [None]
  - Post procedural haemorrhage [None]

NARRATIVE: CASE EVENT DATE: 20231120
